FAERS Safety Report 7319660-0 (Version None)
Quarter: 2011Q1

REPORT INFORMATION
  Report Type: 
  Country: None (occurrence: None)
  Receive Date: 20110228
  Receipt Date: 20100708
  Transmission Date: 20110831
  Serious: No
  Sender: FDA-Public Use
  Company Number: A0869242A

PATIENT
  Age: 34 Year
  Sex: Female

DRUGS (4)
  1. COMPAZINE [Concomitant]
  2. NEXIUM [Concomitant]
  3. LAMICTAL [Suspect]
     Indication: EPILEPSY
     Dosage: 50MG TWICE PER DAY
     Route: 048
     Dates: start: 20100615, end: 20100708
  4. LORTAB [Concomitant]

REACTIONS (9)
  - PRURITUS [None]
  - DERMATITIS CONTACT [None]
  - URTICARIA [None]
  - EYE IRRITATION [None]
  - MALAISE [None]
  - RASH [None]
  - SWELLING [None]
  - PAIN [None]
  - BURNING SENSATION [None]
